FAERS Safety Report 9842406 (Version 2)
Quarter: 2014Q1

REPORT INFORMATION
  Report Type: Spontaneous
  Country: US (occurrence: US)
  Receive Date: 20140124
  Receipt Date: 20140124
  Transmission Date: 20141002
  Serious: Yes (Hospitalization)
  Sender: FDA-Public Use
  Company Number: US-GILEAD-2011-0037574

PATIENT
  Age: 59 Year
  Sex: Female

DRUGS (21)
  1. RANEXA [Suspect]
     Indication: ANGINA PECTORIS
     Route: 048
     Dates: start: 20110217
  2. ASA [Concomitant]
  3. PLAVIX [Concomitant]
  4. VENTOLIN [Concomitant]
  5. NTG [Concomitant]
  6. ELAVIL [Concomitant]
  7. METOPROLOL [Concomitant]
  8. SENOKOT [Concomitant]
  9. PARACETAMOL/HYDROCODONE BITARTRATE [Concomitant]
  10. NEURONTIN [Concomitant]
  11. TRAMADOL [Concomitant]
  12. ZOCOR [Concomitant]
  13. LANTUS [Concomitant]
  14. NOVOLOG [Concomitant]
  15. PREDNISONE [Concomitant]
  16. ADVAIR [Concomitant]
  17. NORVASC [Concomitant]
  18. CIPRO [Concomitant]
  19. LASIX [Concomitant]
  20. PROTONIX [Concomitant]
  21. IMDUR [Concomitant]

REACTIONS (1)
  - Renal failure acute [Recovered/Resolved]
